FAERS Safety Report 10592495 (Version 1)
Quarter: 2014Q4

REPORT INFORMATION
  Report Type: Spontaneous
  Country: FR (occurrence: FR)
  Receive Date: 20141119
  Receipt Date: 20141119
  Transmission Date: 20150529
  Serious: Yes (Hospitalization)
  Sender: FDA-Public Use
  Company Number: PHHY2014FR149557

PATIENT
  Age: 67 Year
  Sex: Male

DRUGS (4)
  1. VOLTARENE [Suspect]
     Active Substance: DICLOFENAC SODIUM
     Indication: BACK PAIN
     Dosage: 1 DF, QD
     Route: 048
     Dates: start: 20140920, end: 20140920
  2. OMEPRAZOLE. [Suspect]
     Active Substance: OMEPRAZOLE
     Indication: BACK PAIN
     Dosage: 20 MG, 1 DF ONCE QD
     Route: 065
     Dates: start: 20140920, end: 20140920
  3. LUMIRELAX [Suspect]
     Active Substance: METHOCARBAMOL
     Indication: BACK PAIN
     Dosage: 10 %, QD, 1 APPLICATION
     Route: 061
     Dates: start: 20140920, end: 20140920
  4. CRESTOR [Concomitant]
     Active Substance: ROSUVASTATIN CALCIUM
     Indication: PRODUCT USED FOR UNKNOWN INDICATION
     Dosage: 5 MG, UNK, FOR LONG TIME
     Route: 065

REACTIONS (1)
  - Pharyngeal oedema [Recovered/Resolved]

NARRATIVE: CASE EVENT DATE: 20140920
